FAERS Safety Report 13198342 (Version 1)
Quarter: 2017Q1

REPORT INFORMATION
  Report Type: Spontaneous
  Country: US (occurrence: US)
  Receive Date: 20170208
  Receipt Date: 20170208
  Transmission Date: 20170428
  Serious: Yes (Other)
  Sender: FDA-Public Use
  Company Number: US-PFIZER INC-2017054998

PATIENT
  Sex: Female

DRUGS (2)
  1. NEURONTIN [Suspect]
     Active Substance: GABAPENTIN
     Dosage: 600 MG, 3X/DAY
  2. NEURONTIN [Suspect]
     Active Substance: GABAPENTIN
     Dosage: 600 MG, 4X/DAY

REACTIONS (10)
  - Brain injury [Unknown]
  - Tremor [Unknown]
  - Lethargy [Unknown]
  - Head injury [Unknown]
  - Dizziness [Unknown]
  - Road traffic accident [Unknown]
  - Burning sensation [Unknown]
  - Dysarthria [Unknown]
  - Fall [Unknown]
  - Neuralgia [Unknown]
